FAERS Safety Report 15756576 (Version 2)
Quarter: 2019Q1

REPORT INFORMATION
  Report Type: Report from Study
  Country: None (occurrence: US)
  Receive Date: 20181224
  Receipt Date: 20190319
  Transmission Date: 20190417
  Serious: Yes (Hospitalization)
  Sender: FDA-Public Use
  Company Number: US-ABBVIE-18K-163-2595216-00

PATIENT
  Age: 21 Year
  Sex: Female
  Weight: 83.99 kg

DRUGS (2)
  1. HUMIRA [Suspect]
     Active Substance: ADALIMUMAB
     Indication: CROHN^S DISEASE
     Route: 058
     Dates: start: 201809, end: 201812
  2. HUMIRA [Suspect]
     Active Substance: ADALIMUMAB
     Route: 058
     Dates: start: 201812

REACTIONS (6)
  - Drug ineffective [Recovering/Resolving]
  - Rectal haemorrhage [Recovered/Resolved]
  - Abdominal pain [Recovering/Resolving]
  - Stress [Not Recovered/Not Resolved]
  - Haematochezia [Recovered/Resolved]
  - Crohn^s disease [Recovered/Resolved]

NARRATIVE: CASE EVENT DATE: 201811
